FAERS Safety Report 9386156 (Version 1)
Quarter: 2013Q3

REPORT INFORMATION
  Report Type: Spontaneous
  Country: US (occurrence: US)
  Receive Date: 20130707
  Receipt Date: 20130707
  Transmission Date: 20140515
  Serious: No
  Sender: FDA-Public Use
  Company Number: US-ALLERGAN-1307847US

PATIENT
  Age: 76 Year
  Sex: Female

DRUGS (3)
  1. LUMIGAN? 0.01% [Suspect]
     Indication: PRODUCT USED FOR UNKNOWN INDICATION
     Dosage: UNK
     Dates: start: 201208, end: 20130528
  2. RESTASIS? [Concomitant]
     Indication: PRODUCT USED FOR UNKNOWN INDICATION
  3. ALPHAGAN? P [Concomitant]
     Indication: PRODUCT USED FOR UNKNOWN INDICATION

REACTIONS (1)
  - Eye pruritus [Unknown]
